FAERS Safety Report 20794094 (Version 1)
Quarter: 2022Q2

REPORT INFORMATION
  Report Type: Spontaneous
  Country: ES (occurrence: ES)
  Receive Date: 20220506
  Receipt Date: 20220506
  Transmission Date: 20220720
  Serious: Yes (Hospitalization, Other)
  Sender: FDA-Public Use
  Company Number: ES-AEMPS-1168098

PATIENT
  Age: 75 Year
  Sex: Male

DRUGS (4)
  1. ERTAPENEM [Suspect]
     Active Substance: ERTAPENEM
     Indication: Peritonitis bacterial
     Dosage: 1 GRAM, ONCE A DAY
     Route: 042
     Dates: start: 20220301, end: 20220314
  2. CEFTRIAXONE [Concomitant]
     Active Substance: CEFTRIAXONE
     Indication: Peritonitis bacterial
     Dosage: 2.5 GRAM, ONCE A DAY
     Route: 042
     Dates: start: 20220215, end: 20220218
  3. PIPERACILLIN AND TAZOBACTAM [Concomitant]
     Active Substance: PIPERACILLIN SODIUM\TAZOBACTAM SODIUM
     Indication: Peritonitis bacterial
     Dosage: 1 DOSAGE FORM, TWO TIMES A DAY
     Route: 042
     Dates: start: 20220218, end: 20220301
  4. TEICOPLANIN [Concomitant]
     Active Substance: TEICOPLANIN
     Indication: Peritonitis bacterial
     Dosage: 400 MILLIGRAM, TWO TIMES A DAY
     Route: 042
     Dates: start: 20220227, end: 20220327

REACTIONS (1)
  - Encephalopathy [Recovered/Resolved]

NARRATIVE: CASE EVENT DATE: 20220314
